FAERS Safety Report 7824269-6 (Version None)
Quarter: 2011Q4

REPORT INFORMATION
  Report Type: 
  Country: None (occurrence: None)
  Receive Date: 20111019
  Receipt Date: 20111018
  Transmission Date: 20120403
  Serious: Yes (Hospitalization, Other)
  Sender: FDA-Public Use
  Company Number: AU-B.I. PHARMACEUTICALS,INC./RIDGEFIELD-2011-AU-01497AU

PATIENT
  Sex: Male
  Weight: 88.4 kg

DRUGS (4)
  1. SPIRIVA [Suspect]
  2. PRADAXA [Suspect]
     Indication: ATRIAL FIBRILLATION
     Dosage: 220 MG
     Dates: start: 20110720
  3. PERINDOPRIL ERBUMINE [Concomitant]
  4. PPI [Concomitant]
     Indication: GASTROOESOPHAGEAL REFLUX DISEASE

REACTIONS (4)
  - SYNCOPE [None]
  - COMA [None]
  - CHEST PAIN [None]
  - DYSPNOEA [None]
